FAERS Safety Report 7075549-6 (Version None)
Quarter: 2010Q4

REPORT INFORMATION
  Report Type: 
  Country: None (occurrence: None)
  Receive Date: 20101030
  Receipt Date: 20100921
  Transmission Date: 20110411
  Serious: No
  Sender: FDA-Public Use
  Company Number: US-WYE-H17669510

PATIENT
  Age: 33 Year
  Sex: Male
  Weight: 77.18 kg

DRUGS (2)
  1. ADVIL PM [Suspect]
     Indication: PAIN
     Route: 048
     Dates: start: 20100801, end: 20100916
  2. ADVIL PM [Suspect]
     Indication: INSOMNIA

REACTIONS (4)
  - CHEST PAIN [None]
  - DRUG EFFECT DECREASED [None]
  - HYPERHIDROSIS [None]
  - PALPITATIONS [None]
